FAERS Safety Report 17827805 (Version 1)
Quarter: 2020Q2

REPORT INFORMATION
  Report Type: Spontaneous
  Country: US (occurrence: US)
  Receive Date: 20200526
  Receipt Date: 20200526
  Transmission Date: 20200714
  Serious: Yes (Other)
  Sender: FDA-Public Use
  Company Number: None

PATIENT
  Age: 65 Year
  Sex: Female
  Weight: 70.31 kg

DRUGS (1)
  1. BISOPROLOL FUMARATE TABLETS [Suspect]
     Active Substance: BISOPROLOL FUMARATE
     Indication: HYPERTENSION
     Route: 048
     Dates: start: 20200504, end: 20200522

REACTIONS (5)
  - Lip disorder [None]
  - Heart rate increased [None]
  - Blepharospasm [None]
  - Product substitution issue [None]
  - Muscle twitching [None]

NARRATIVE: CASE EVENT DATE: 20200504
